FAERS Safety Report 8037204-5 (Version None)
Quarter: 2012Q1

REPORT INFORMATION
  Report Type: 
  Country: None (occurrence: None)
  Receive Date: 20120111
  Receipt Date: 20120102
  Transmission Date: 20120608
  Serious: Yes (Death)
  Sender: FDA-Public Use
  Company Number: US-BAYER-2012-001859

PATIENT
  Age: 26 Year
  Sex: Female

DRUGS (6)
  1. PROPRANOLOL [Suspect]
  2. ZIPRASIDONE HYDROCHLORIDE [Suspect]
  3. AMITRIPTYLINE HCL [Suspect]
  4. NAPROXEN SODIUM [Suspect]
  5. MIRTAZAPINE [Suspect]
  6. LAMOTRIGINE [Suspect]

REACTIONS (1)
  - TOXICITY TO VARIOUS AGENTS [None]
